FAERS Safety Report 9168801 (Version 1)
Quarter: 2013Q1

REPORT INFORMATION
  Report Type: Spontaneous
  Country: FR (occurrence: None)
  Receive Date: 20130307
  Receipt Date: 20130307
  Transmission Date: 20140127
  Serious: Yes (Hospitalization)
  Sender: FDA-Public Use
  Company Number: SYM-2013-01358

PATIENT
  Age: 57 Year
  Sex: Female

DRUGS (9)
  1. FLAGYL [Suspect]
     Dosage: UNKNOWN, ORAL
     Route: 048
     Dates: start: 20121214, end: 20121231
  2. CEFTRIAXONE [Suspect]
     Dosage: UNKNOWN, INTRAVENOUS (NOT OTHERWISE SPECIFIED)
     Route: 042
     Dates: start: 20121214, end: 20121228
  3. DUROGESIC (FENTANY) (FENTANYL) [Concomitant]
  4. ZYLORIC (ALLOPURINOL) (ALLOPURINOL) [Concomitant]
  5. KALEORID (POTASSIUM CHLORIDE) (POTASSIUM CHLORIDE) [Concomitant]
  6. FUMAFER (FERROUS FUMARATE) (FERROUS FUMARATE) [Concomitant]
  7. CORDARONE (AMIODARONE HYDROCHLORIDE) (AMIODARONE HYDROCHLORIDE) [Concomitant]
  8. LEVOTHYROX (LEVOTHYROXINE SODIUM) (LEVOTHYROXINE SODIUM) [Concomitant]
  9. CARDENSIEL (BISOPROLOL FUMARATE) (BISOPROLOL FUMARATE) [Concomitant]

REACTIONS (3)
  - Grand mal convulsion [None]
  - Cellulitis gangrenous [None]
  - Infection [None]
